FAERS Safety Report 22017765 (Version 4)
Quarter: 2023Q2

REPORT INFORMATION
  Report Type: Spontaneous
  Country: JP (occurrence: JP)
  Receive Date: 20230221
  Receipt Date: 20230517
  Transmission Date: 20230722
  Serious: Yes (Other)
  Sender: FDA-Public Use
  Company Number: JP-ONO-2023JP003802

PATIENT

DRUGS (2)
  1. OPDIVO [Suspect]
     Active Substance: NIVOLUMAB
     Indication: Gastric cancer
     Route: 041
     Dates: start: 202209, end: 202210
  2. OPDIVO [Suspect]
     Active Substance: NIVOLUMAB
     Dates: start: 2023

REACTIONS (6)
  - Encephalitis [Unknown]
  - Mental disorder [Unknown]
  - Depression [Unknown]
  - Pruritus [Unknown]
  - Liver abscess [Unknown]
  - Hyperparathyroidism primary [Unknown]
